FAERS Safety Report 4655081-7 (Version None)
Quarter: 2005Q2

REPORT INFORMATION
  Report Type: 
  Country: None (occurrence: None)
  Receive Date: 20050503
  Receipt Date: 20050421
  Transmission Date: 20051028
  Serious: No
  Sender: FDA-Public Use
  Company Number: 2005AC00647

PATIENT
  Age: 59 Year
  Sex: Female

DRUGS (4)
  1. SEROQUEL [Suspect]
     Indication: SCHIZOPHRENIFORM DISORDER
     Dosage: 200 MG DAILY PO
     Route: 048
     Dates: start: 20030801, end: 20040901
  2. SEROQUEL [Suspect]
     Indication: SCHIZOPHRENIFORM DISORDER
     Dosage: 400 MG DAILY PO
     Route: 048
     Dates: start: 20040901, end: 20041224
  3. ZYPREXA [Suspect]
     Indication: SCHIZOPHRENIFORM DISORDER
  4. LITHIUM [Suspect]

REACTIONS (2)
  - DRUG INTERACTION [None]
  - TARDIVE DYSKINESIA [None]
